FAERS Safety Report 7381249-5 (Version None)
Quarter: 2011Q1

REPORT INFORMATION
  Report Type: 
  Country: None (occurrence: None)
  Receive Date: 20110329
  Receipt Date: 20110318
  Transmission Date: 20110831
  Serious: Yes (Hospitalization)
  Sender: FDA-Public Use
  Company Number: US-ALEXION-A201001643

PATIENT
  Sex: Male

DRUGS (6)
  1. SOLIRIS [Suspect]
     Indication: PAROXYSMAL NOCTURNAL HAEMOGLOBINURIA
     Dosage: 900 MG, UNK
     Route: 042
  2. FOLIC ACID [Concomitant]
     Dosage: UNK, QD
     Route: 048
  3. COREG [Concomitant]
     Dosage: 1 TAB, BID
     Route: 048
  4. IRON [Concomitant]
     Dosage: UNK, QD
     Route: 048
  5. ASPIRIN [Concomitant]
     Dosage: 325 MG, QD
     Route: 048
  6. LISINOPRIL [Concomitant]
     Indication: CARDIAC FAILURE CONGESTIVE
     Dosage: UNK, QD
     Route: 048

REACTIONS (11)
  - CHOLECYSTITIS [None]
  - HAEMOGLOBINURIA [None]
  - DEHYDRATION [None]
  - WHITE BLOOD CELL COUNT DECREASED [None]
  - CHROMATURIA [None]
  - JAUNDICE [None]
  - BLOOD CREATININE INCREASED [None]
  - CHOLELITHIASIS [None]
  - BILE DUCT OBSTRUCTION [None]
  - HAEMATOCRIT DECREASED [None]
  - ABDOMINAL PAIN [None]
